FAERS Safety Report 6614915-7 (Version None)
Quarter: 2010Q1

REPORT INFORMATION
  Report Type: 
  Country: None (occurrence: None)
  Receive Date: 20100305
  Receipt Date: 20100219
  Transmission Date: 20100710
  Serious: Yes (Death, Hospitalization, Other)
  Sender: FDA-Public Use
  Company Number: GB-RANBAXY-2008RR-17050

PATIENT
  Age: 5 Month
  Sex: Male
  Weight: 6.35 kg

DRUGS (1)
  1. PARACETAMOL [Suspect]
     Indication: PYREXIA
     Dosage: 0.3 ML, UNK
     Dates: start: 19810204

REACTIONS (7)
  - DIARRHOEA [None]
  - DRUG TOXICITY [None]
  - HAEMATEMESIS [None]
  - HEPATIC NECROSIS [None]
  - LIVER INJURY [None]
  - OVERDOSE [None]
  - SOMNOLENCE [None]
